FAERS Safety Report 24111706 (Version 1)
Quarter: 2024Q3

REPORT INFORMATION
  Report Type: Spontaneous
  Country: CN (occurrence: CN)
  Receive Date: 20240718
  Receipt Date: 20240718
  Transmission Date: 20241017
  Serious: Yes (Other)
  Sender: MERCK
  Company Number: CN-009507513-2407CHN008738

PATIENT
  Age: 45 Year
  Sex: Male

DRUGS (8)
  1. POSACONAZOLE [Interacting]
     Active Substance: POSACONAZOLE
     Indication: Pneumonia fungal
     Dosage: 200 MILLIGRAM, Q6H
     Dates: start: 20211004
  2. POSACONAZOLE [Interacting]
     Active Substance: POSACONAZOLE
     Indication: Mucormycosis
  3. TACROLIMUS [Interacting]
     Active Substance: TACROLIMUS
     Dosage: CONCENTRATION WAS MAINTAINED AT 5-8NG/ML
     Dates: start: 20211101
  4. TACROLIMUS [Interacting]
     Active Substance: TACROLIMUS
     Dosage: DOSE INCREASED
  5. METHYLPREDNISOLONE [Concomitant]
     Active Substance: METHYLPREDNISOLONE
     Dosage: 20 MILLIGRAM, QD
     Route: 048
  6. AMPHOTERICIN B CHOLESTERYL SULFATE [Concomitant]
     Active Substance: AMPHOTERICIN B CHOLESTERYL SULFATE
     Indication: Pneumonia fungal
     Dosage: 1.3 MILLIGRAM/KILOGRAM, QD
     Dates: start: 20211004
  7. AMPHOTERICIN B CHOLESTERYL SULFATE [Concomitant]
     Active Substance: AMPHOTERICIN B CHOLESTERYL SULFATE
     Indication: Mucormycosis
  8. MYCOPHENOLATE MOFETIL [Concomitant]
     Active Substance: MYCOPHENOLATE MOFETIL
     Dosage: UNK
     Dates: start: 2021

REACTIONS (3)
  - Nephropathy toxic [Not Recovered/Not Resolved]
  - Product use in unapproved indication [Unknown]
  - Labelled drug-drug interaction issue [Unknown]

NARRATIVE: CASE EVENT DATE: 20211004
